FAERS Safety Report 19142434 (Version 1)
Quarter: 2021Q2

REPORT INFORMATION
  Report Type: Spontaneous
  Country: PT (occurrence: PT)
  Receive Date: 20210415
  Receipt Date: 20210415
  Transmission Date: 20210717
  Serious: Yes (Hospitalization, Other)
  Sender: FDA-Public Use
  Company Number: PT-TEVA-2021-PT-1900695

PATIENT
  Age: 64 Year
  Sex: Male

DRUGS (4)
  1. DACARBAZINE. [Suspect]
     Active Substance: DACARBAZINE
     Dosage: 1 CYCLE OF TREATMENT DOXORUBICIN, DACARBAZINE AND VINCRISTINE
     Route: 065
  2. VINCRISTINE [Suspect]
     Active Substance: VINCRISTINE
     Dosage: 1 CYCLE OF TREATMENT DOXORUBICIN, DACARBAZINE AND VINCRISTINE
     Route: 065
  3. DOXORUBICIN [Suspect]
     Active Substance: DOXORUBICIN
     Dosage: 1 CYCLE OF TREATMENT DOXORUBICIN, DACARBAZINE AND VINCRISTINE
     Route: 065
  4. CYCLOPHOSPHAMIDE. [Suspect]
     Active Substance: CYCLOPHOSPHAMIDE
     Dosage: 2 CYCLE OF TREATMENT CYCLOPHOSPHAMIDE WITH  VINCRISTINE
     Route: 065

REACTIONS (2)
  - Bone marrow failure [Unknown]
  - Respiratory tract infection [Unknown]
